FAERS Safety Report 5006523-9 (Version None)
Quarter: 2006Q2

REPORT INFORMATION
  Report Type: 
  Country: None (occurrence: None)
  Receive Date: 20060519
  Receipt Date: 20060509
  Transmission Date: 20061013
  Serious: Yes (Hospitalization)
  Sender: FDA-Public Use
  Company Number: GB-SANOFI-SYNTHELABO-A01200603529

PATIENT
  Age: 61 Year
  Sex: Male

DRUGS (8)
  1. PLAVIX [Suspect]
     Indication: VASCULAR OPERATION
     Route: 048
     Dates: start: 20060310, end: 20060318
  2. ASPIRIN [Suspect]
     Indication: VASCULAR OPERATION
     Route: 048
     Dates: end: 20060310
  3. SIMVASTATIN [Concomitant]
     Indication: BLOOD CHOLESTEROL INCREASED
     Route: 048
  4. BENDROFLUMETHIAZIDE [Concomitant]
     Indication: HYPERTENSION
     Route: 048
  5. RAMIPRIL [Concomitant]
     Indication: HYPERTENSION
     Route: 048
  6. PARACETAMOL [Concomitant]
     Indication: PAIN
     Route: 048
  7. LACTULOSE [Concomitant]
     Indication: CONSTIPATION
     Route: 048
  8. IBUPROFEN [Concomitant]
     Indication: DRUG USE FOR UNKNOWN INDICATION
     Dosage: 400 MG THREE TIMES DAILY WAS PRESCRIBED, BUT UNCERTAIN HOW MANY DOSES TAKEN.
     Route: 065
     Dates: start: 20060313

REACTIONS (4)
  - CONFUSIONAL STATE [None]
  - HAEMOGLOBIN DECREASED [None]
  - MELAENA [None]
  - OESOPHAGITIS [None]
